FAERS Safety Report 8620713-5 (Version None)
Quarter: 2012Q3

REPORT INFORMATION
  Report Type: 
  Country: None (occurrence: None)
  Receive Date: 20120824
  Receipt Date: 20120810
  Transmission Date: 20120928
  Serious: Yes (Hospitalization, Other)
  Sender: FDA-Public Use
  Company Number: JP-VERTEX PHARMACEUTICAL INC.-AE-2012-006213

PATIENT
  Age: 65 Year
  Sex: Male

DRUGS (19)
  1. LANSOPRAZOLE [Concomitant]
     Route: 048
     Dates: start: 20120220, end: 20120308
  2. BISOPROLOL FUMARATE [Concomitant]
     Dosage: 5 MG, UNK
     Route: 048
  3. GLIMEPIRIDE [Concomitant]
     Dosage: 3 MG, QD
     Route: 048
  4. TALION                             /01587402/ [Concomitant]
     Dosage: UNK
     Route: 048
  5. HUMALOG [Concomitant]
     Route: 058
  6. REBETOL [Suspect]
     Dosage: 600 MG, UNK
     Route: 048
     Dates: start: 20120316, end: 20120404
  7. EPINASTINE HYDROCHLORIDE [Concomitant]
     Route: 048
  8. PEGINTRON                          /01543001/ [Suspect]
     Dosage: 1.0 A?G/KG, UNK
     Route: 058
     Dates: end: 20120801
  9. PREDNISOLONE [Concomitant]
     Route: 048
     Dates: start: 20120221, end: 20120226
  10. RABEPRAZOLE SODIUM [Concomitant]
     Dosage: 10 MG, QD
     Route: 048
     Dates: end: 20120525
  11. JANUVIA [Concomitant]
     Route: 048
  12. VX-950 [Suspect]
     Indication: HEPATITIS C
     Dosage: 2250 MG, QD
     Route: 048
     Dates: start: 20120216, end: 20120426
  13. MEIBIS [Concomitant]
     Route: 048
  14. PEGINTRON                          /01543001/ [Suspect]
     Indication: HEPATITIS C
     Route: 058
     Dates: start: 20120216
  15. REBETOL [Suspect]
     Indication: HEPATITIS C
     Dosage: 800 MG, QD
     Route: 048
     Dates: start: 20120216, end: 20120315
  16. LENDORMIN [Concomitant]
     Dosage: UNK MG, UNK
     Route: 048
  17. AMLODIPINE [Concomitant]
     Dosage: 5 MG, QD
     Route: 048
  18. REBETOL [Suspect]
     Dosage: 400 MG, QD
     Route: 048
     Dates: start: 20120405, end: 20120801
  19. METFORMIN HCL [Concomitant]
     Dosage: 250 MG, QD
     Route: 048

REACTIONS (4)
  - DRUG ERUPTION [None]
  - WHITE BLOOD CELL COUNT DECREASED [None]
  - CELLULITIS [None]
  - SKIN DISORDER [None]
